FAERS Safety Report 15779679 (Version 1)
Quarter: 2019Q1

REPORT INFORMATION
  Report Type: Spontaneous
  Country: CN (occurrence: CN)
  Receive Date: 20190101
  Receipt Date: 20190101
  Transmission Date: 20190417
  Serious: Yes (Other)
  Sender: FDA-Public Use
  Company Number: CN-ALKEM LABORATORIES LIMITED-CN-ALKEM-2018-04014

PATIENT

DRUGS (4)
  1. MYCOPHENOLATE MOFETIL. [Suspect]
     Active Substance: MYCOPHENOLATE MOFETIL
     Indication: NEPHROTIC SYNDROME
     Dosage: 20-30 MG/KG PER DAY (TWO DOSES PER DAY, MAXIMUM DOSE 1 G)
     Route: 065
  2. PREDNISONE. [Concomitant]
     Active Substance: PREDNISONE
     Indication: DISEASE RECURRENCE
     Dosage: 1 MG/KG, EVERY OTHER DAY UNTIL WEEK 8 FOLLOWED BY GRADUAL TAPERING
     Route: 065
  3. PREDNISONE. [Concomitant]
     Active Substance: PREDNISONE
     Indication: NEPHROTIC SYNDROME
     Dosage: 1 MG/KG, QD, (MAXIMUM DAILY DOSE 30 MG)
     Route: 065
  4. MYCOPHENOLATE MOFETIL. [Suspect]
     Active Substance: MYCOPHENOLATE MOFETIL
     Indication: DISEASE RECURRENCE

REACTIONS (1)
  - Drug ineffective [Unknown]
